FAERS Safety Report 10189286 (Version 1)
Quarter: 2014Q2

REPORT INFORMATION
  Report Type: Spontaneous
  Country: US (occurrence: None)
  Receive Date: 20140521
  Receipt Date: 20140521
  Transmission Date: 20141212
  Serious: Yes (Hospitalization)
  Sender: FDA-Public Use
  Company Number: None

PATIENT
  Age: 82 Year
  Sex: Female

DRUGS (7)
  1. EXJADE [Suspect]
     Indication: MYELODYSPLASTIC SYNDROME
     Route: 048
     Dates: start: 20140329
  2. FLUCONAZOLE [Concomitant]
  3. ACYCLOVIR [Concomitant]
  4. CIPROFLOXACIN [Concomitant]
  5. ATORVASTATIN [Concomitant]
  6. ZOLPIDEM [Concomitant]
  7. DILTIAZEM [Concomitant]

REACTIONS (1)
  - White blood cell count decreased [None]
